FAERS Safety Report 22908034 (Version 11)
Quarter: 2025Q1

REPORT INFORMATION
  Report Type: Report from Study
  Country: US (occurrence: US)
  Receive Date: 20230905
  Receipt Date: 20250303
  Transmission Date: 20250409
  Serious: Yes (Other)
  Sender: TAKEDA
  Company Number: US-TAKEDA-2023TUS085380

PATIENT
  Sex: Female

DRUGS (25)
  1. PONATINIB [Suspect]
     Active Substance: PONATINIB
     Indication: Acute lymphocytic leukaemia recurrent
  2. PONATINIB [Suspect]
     Active Substance: PONATINIB
     Indication: Leukaemia
     Dosage: 30 MILLIGRAM, QD
  3. PONATINIB [Suspect]
     Active Substance: PONATINIB
     Dosage: 30 MILLIGRAM, QD
  4. PONATINIB [Suspect]
     Active Substance: PONATINIB
     Dosage: 15 MILLIGRAM, QD
  5. PONATINIB [Suspect]
     Active Substance: PONATINIB
     Dosage: 30 MILLIGRAM, QD
  6. PONATINIB [Suspect]
     Active Substance: PONATINIB
     Dosage: 15 MILLIGRAM, QD
  7. PREDNISONE [Suspect]
     Active Substance: PREDNISONE
     Indication: Product used for unknown indication
  8. ZOLPIDEM TARTRATE [Concomitant]
     Active Substance: ZOLPIDEM TARTRATE
  9. ATORVASTATIN CALCIUM [Concomitant]
     Active Substance: ATORVASTATIN CALCIUM
  10. ACYCLOVIR [Concomitant]
     Active Substance: ACYCLOVIR
  11. OMEPRAZOLE [Concomitant]
     Active Substance: OMEPRAZOLE
  12. ZOFRAN [Concomitant]
     Active Substance: ONDANSETRON HYDROCHLORIDE
  13. REFRESH P.M. [Concomitant]
     Active Substance: MINERAL OIL\PETROLATUM
  14. ACITRETIN [Concomitant]
     Active Substance: ACITRETIN
  15. TRIAMCINOLONE ACETONIDE [Concomitant]
     Active Substance: TRIAMCINOLONE ACETONIDE
  16. MIRTAZAPINE [Concomitant]
     Active Substance: MIRTAZAPINE
  17. BACTRIM [Concomitant]
     Active Substance: SULFAMETHOXAZOLE\TRIMETHOPRIM
  18. ESTRADIOL [Concomitant]
     Active Substance: ESTRADIOL
  19. DIFLUPREDNATE [Concomitant]
     Active Substance: DIFLUPREDNATE
  20. UNSPECIFIED INGREDIENT [Concomitant]
     Active Substance: UNSPECIFIED INGREDIENT
  21. CYCLOSPORINE [Concomitant]
     Active Substance: CYCLOSPORINE
  22. REFRESH CLASSIC [Concomitant]
     Active Substance: POLYVINYL ALCOHOL\POVIDONE
  23. MAGNESIUM GLYCINATE [Concomitant]
     Active Substance: MAGNESIUM GLYCINATE
  24. CALCIUM CARBONATE\CHOLECALCIFEROL [Concomitant]
     Active Substance: CALCIUM CARBONATE\CHOLECALCIFEROL
  25. ASPIRIN [Concomitant]
     Active Substance: ASPIRIN

REACTIONS (18)
  - Retinal oedema [Unknown]
  - Perirectal abscess [Unknown]
  - Hair growth abnormal [Unknown]
  - Product dose omission issue [Unknown]
  - Eye disorder [Unknown]
  - Taste disorder [Unknown]
  - Dry skin [Not Recovered/Not Resolved]
  - Dry eye [Not Recovered/Not Resolved]
  - Decreased appetite [Recovered/Resolved]
  - Dry mouth [Unknown]
  - Weight decreased [Unknown]
  - Visual impairment [Unknown]
  - Skin exfoliation [Unknown]
  - Blood glucose increased [Not Recovered/Not Resolved]
  - Nausea [Recovered/Resolved]
  - Alopecia [Unknown]
  - Fistula [Unknown]
  - Fatigue [Unknown]
